FAERS Safety Report 7998745-X (Version None)
Quarter: 2011Q4

REPORT INFORMATION
  Report Type: 
  Country: None (occurrence: None)
  Receive Date: 20111221
  Receipt Date: 20111214
  Transmission Date: 20120403
  Serious: Yes (Hospitalization)
  Sender: FDA-Public Use
  Company Number: US-B.I. PHARMACEUTICALS,INC./RIDGEFIELD-2011-BP-11711BP

PATIENT
  Sex: Female

DRUGS (10)
  1. PRADAXA [Suspect]
     Indication: ATRIAL FIBRILLATION
     Dosage: 150 MG
     Route: 048
     Dates: start: 20110301
  2. ZETIA [Concomitant]
     Indication: BLOOD CHOLESTEROL INCREASED
  3. SOTALOL HCL [Concomitant]
     Indication: HYPERTENSION
     Dates: start: 20110613
  4. MACRODANTIN [Concomitant]
     Indication: HYPERTONIC BLADDER
  5. FENTANYL [Concomitant]
     Indication: PAIN
  6. COZAAR [Concomitant]
     Indication: HYPERTENSION
     Route: 048
     Dates: start: 20050101
  7. TIMOLOL MALEATE [Concomitant]
     Indication: GLAUCOMA
  8. PRADAXA [Suspect]
     Dosage: 150 MG
     Route: 048
     Dates: start: 20110301
  9. NORVASC [Concomitant]
     Indication: HYPERTENSION
     Route: 048
  10. TOVIAZ [Concomitant]
     Indication: HYPERTONIC BLADDER

REACTIONS (8)
  - MELAENA [None]
  - FATIGUE [None]
  - CONTUSION [None]
  - SOMNOLENCE [None]
  - HEART RATE INCREASED [None]
  - DYSPEPSIA [None]
  - RED BLOOD CELL COUNT DECREASED [None]
  - DIARRHOEA [None]
